FAERS Safety Report 20676633 (Version 1)
Quarter: 2022Q2

REPORT INFORMATION
  Report Type: Spontaneous
  Country: CA (occurrence: CA)
  Receive Date: 20220406
  Receipt Date: 20220406
  Transmission Date: 20220720
  Serious: Yes (Hospitalization)
  Sender: FDA-Public Use
  Company Number: CA-ALVOGEN-2022-ALVOGEN-119464

PATIENT
  Weight: 0.88 kg

DRUGS (1)
  1. FENTANYL [Suspect]
     Active Substance: FENTANYL
     Indication: Pain management

REACTIONS (1)
  - Oxygen saturation decreased [Unknown]
